FAERS Safety Report 10577596 (Version 6)
Quarter: 2015Q2

REPORT INFORMATION
  Report Type: Report from Study
  Country: IL (occurrence: IL)
  Receive Date: 20141111
  Receipt Date: 20150521
  Transmission Date: 20150821
  Serious: Yes (Hospitalization)
  Sender: FDA-Public Use
  Company Number: IL-009507513-1311ISR002898

PATIENT
  Age: 62 Year
  Sex: Male
  Weight: 54.5 kg

DRUGS (16)
  1. PEMBROLIZUMAB. [Suspect]
     Active Substance: PEMBROLIZUMAB
     Indication: TRANSITIONAL CELL CARCINOMA
     Dosage: 10 MG/KG, QOW
     Route: 042
     Dates: start: 20131007, end: 20131007
  2. MIR [Suspect]
     Active Substance: MORPHINE SULFATE
     Indication: TUMOUR PAIN
     Dosage: 90MG DAILY DOSE, PRN, STRENGTH: 90MG
     Route: 048
     Dates: start: 20131017, end: 20131103
  3. MICROPIRIN [Concomitant]
     Indication: MESENTERIC ARTERY THROMBOSIS
     Dosage: 100 MG, QD
     Route: 048
     Dates: start: 201307
  4. SEROXAT [Concomitant]
     Active Substance: PAROXETINE HYDROCHLORIDE
     Indication: DEPRESSION
     Dosage: 20 MG, QD
     Route: 048
     Dates: start: 201308
  5. NORMITEN [Concomitant]
     Active Substance: ATENOLOL
     Indication: HYPERTENSION
     Dosage: 25 MG, QD
     Route: 048
     Dates: start: 201308
  6. SIMVASTATIN. [Concomitant]
     Active Substance: SIMVASTATIN
     Indication: HYPERLIPIDAEMIA
     Dosage: 20 MG, QD
     Route: 048
     Dates: start: 201308
  7. LAXADIN [Concomitant]
     Indication: CONSTIPATION
     Dosage: 5 MG, BID
     Route: 048
     Dates: start: 201308
  8. DUROGESIC [Suspect]
     Active Substance: FENTANYL
     Indication: TUMOUR PAIN
     Dosage: STRENGTH: 300MG/HOUR, 300 MICROGRAM/HOUR DAILY, FREQUENCY: OTHER
     Route: 062
     Dates: start: 20131017, end: 20131110
  9. CADEX (DOXAZOSIN MESYLATE) [Concomitant]
     Indication: HYPERTENSION
     Dosage: 2 MG, BID
     Route: 048
     Dates: start: 201308
  10. LYRICA [Concomitant]
     Active Substance: PREGABALIN
     Indication: TUMOUR PAIN
     Dosage: 75 MG, BID
     Route: 048
     Dates: start: 20131014
  11. PEMBROLIZUMAB. [Suspect]
     Active Substance: PEMBROLIZUMAB
     Dosage: 10 MG/KG, QOW
     Route: 042
     Dates: start: 20131022, end: 20131022
  12. VABEN [Concomitant]
     Active Substance: OXAZEPAM
     Indication: ANXIETY
     Dosage: 10MG DAILY DOSE, PRN
     Route: 048
     Dates: start: 201308
  13. NOCTURNO [Concomitant]
     Indication: SLEEP DISORDER
     Dosage: 7.5MG DAILY DOSE, PRN
     Route: 048
     Dates: start: 201308
  14. HEMP [Concomitant]
     Active Substance: HEMP
     Indication: TUMOUR PAIN
     Dosage: PUFF, PRN
     Route: 055
     Dates: start: 201208
  15. VITAMINS (UNSPECIFIED) [Concomitant]
     Active Substance: VITAMINS
     Indication: VITAMIN SUPPLEMENTATION
     Dosage: 1 TABLET, QD
     Route: 048
     Dates: start: 201306
  16. DOCTORS BEST BEST CURCUMIN C3 COMPLEX [Concomitant]
     Indication: PHYTOTHERAPY
     Dosage: 1 TABLET, QD
     Route: 048
     Dates: start: 201308

REACTIONS (2)
  - Toxic encephalopathy [Recovered/Resolved]
  - Intestinal obstruction [Recovered/Resolved]

NARRATIVE: CASE EVENT DATE: 20131103
